FAERS Safety Report 5739444-4 (Version None)
Quarter: 2008Q2

REPORT INFORMATION
  Report Type: 
  Country: None (occurrence: None)
  Receive Date: 20080515
  Receipt Date: 20080507
  Transmission Date: 20081010
  Serious: Yes (Hospitalization)
  Sender: FDA-Public Use
  Company Number: ES-PFIZER INC-2008039537

PATIENT
  Age: 76 Year
  Sex: Male

DRUGS (1)
  1. CARDURA [Suspect]
     Indication: MALIGNANT HYPERTENSION
     Route: 048
     Dates: start: 20061115, end: 20061212

REACTIONS (1)
  - EPISTAXIS [None]
